FAERS Safety Report 6525579-5 (Version None)
Quarter: 2010Q1

REPORT INFORMATION
  Report Type: 
  Country: None (occurrence: None)
  Receive Date: 20100104
  Receipt Date: 20091223
  Transmission Date: 20100710
  Serious: Yes (Other)
  Sender: FDA-Public Use
  Company Number: US-PFIZER INC-2009298920

PATIENT
  Age: 72 Year
  Sex: Female

DRUGS (1)
  1. ZITHROMAX [Suspect]

REACTIONS (5)
  - ABDOMINAL PAIN UPPER [None]
  - DIZZINESS [None]
  - ENTEROCOLITIS INFECTIOUS [None]
  - NAUSEA [None]
  - PAIN [None]
